FAERS Safety Report 11577048 (Version 1)
Quarter: 2015Q3

REPORT INFORMATION
  Report Type: Spontaneous
  Country: BE (occurrence: BE)
  Receive Date: 20150930
  Receipt Date: 20150930
  Transmission Date: 20151125
  Serious: Yes (Other)
  Sender: FDA-Public Use
  Company Number: BE-GLAXOSMITHKLINE-BE2015GSK138347

PATIENT

DRUGS (2)
  1. BENLYSTA [Suspect]
     Active Substance: BELIMUMAB
     Indication: SYSTEMIC LUPUS ERYTHEMATOSUS
  2. CHLOROQUINE [Concomitant]
     Active Substance: CHLOROQUINE\CHLOROQUINE PHOSPHATE

REACTIONS (3)
  - Drug ineffective [Unknown]
  - Glomerulonephritis [Unknown]
  - Nephrotic syndrome [Unknown]
